FAERS Safety Report 23532694 (Version 3)
Quarter: 2024Q1

REPORT INFORMATION
  Report Type: Spontaneous
  Country: CA (occurrence: CA)
  Receive Date: 20240216
  Receipt Date: 20240313
  Transmission Date: 20240410
  Serious: Yes (Other)
  Sender: FDA-Public Use
  Company Number: CA-PFIZER INC-PV202300179737

PATIENT
  Age: 53 Year
  Sex: Male
  Weight: 78 kg

DRUGS (9)
  1. ZIRABEV [Suspect]
     Active Substance: BEVACIZUMAB-BVZR
     Dosage: 770 MG (SUPPOSED TO RECEIVE 10 MG/KG)
     Route: 042
     Dates: start: 20231030
  2. ZIRABEV [Suspect]
     Active Substance: BEVACIZUMAB-BVZR
     Dosage: 770 MG (DOSE SHOULD BE 10 MG/KG)
     Route: 042
     Dates: start: 20231113
  3. ZIRABEV [Suspect]
     Active Substance: BEVACIZUMAB-BVZR
     Dosage: 770 MG, EVERY 2 WEEKS
     Route: 042
     Dates: start: 20231127
  4. ZIRABEV [Suspect]
     Active Substance: BEVACIZUMAB-BVZR
     Dosage: 770 MG, EVERY 2 WEEKS
     Route: 042
     Dates: start: 20231211
  5. ZIRABEV [Suspect]
     Active Substance: BEVACIZUMAB-BVZR
     Dosage: 770 MG, EVERY 2 WEEKS
     Route: 042
     Dates: start: 20231228
  6. ZIRABEV [Suspect]
     Active Substance: BEVACIZUMAB-BVZR
     Dosage: 770 MG, EVERY 2 WEEKS
     Route: 042
     Dates: start: 20230115
  7. ZIRABEV [Suspect]
     Active Substance: BEVACIZUMAB-BVZR
     Dosage: 770 MG, EVERY 2 WEEKS
     Route: 042
     Dates: start: 20240129
  8. ZIRABEV [Suspect]
     Active Substance: BEVACIZUMAB-BVZR
     Dosage: 770 MG
     Route: 042
     Dates: start: 20240212
  9. ZIRABEV [Suspect]
     Active Substance: BEVACIZUMAB-BVZR
     Dosage: 770 MG
     Route: 042
     Dates: start: 20240226

REACTIONS (8)
  - Wound [Unknown]
  - Neoplasm progression [Unknown]
  - Blood pressure diastolic increased [Unknown]
  - Blood pressure fluctuation [Unknown]
  - Blood pressure increased [Unknown]
  - Blood pressure systolic increased [Unknown]
  - Incorrect dose administered [Unknown]
  - Proteinuria [Unknown]

NARRATIVE: CASE EVENT DATE: 20231030
